FAERS Safety Report 4708470-6 (Version None)
Quarter: 2005Q3

REPORT INFORMATION
  Report Type: 
  Country: None (occurrence: None)
  Receive Date: 20050707
  Receipt Date: 20050627
  Transmission Date: 20060218
  Serious: Yes (Hospitalization)
  Sender: FDA-Public Use
  Company Number: FR-SANOFI-SYNTHELABO-A02200501707

PATIENT
  Sex: Male

DRUGS (6)
  1. PLAVIX [Suspect]
     Indication: ARTERIAL BYPASS OPERATION
     Route: 048
     Dates: start: 20050330, end: 20050527
  2. PLAVIX [Suspect]
     Route: 048
     Dates: start: 20050531
  3. AMLODIPINE BESYLATE [Suspect]
     Indication: ARTERIAL BYPASS OPERATION
     Route: 048
     Dates: start: 20050330, end: 20050515
  4. LOPERAMIDE [Concomitant]
     Dosage: UNK
     Route: 065
     Dates: start: 19950101
  5. EPITOMAX [Concomitant]
     Dosage: UNK
     Route: 048
     Dates: start: 20020101
  6. FONZYLANE [Concomitant]
     Dosage: UNK
     Route: 065

REACTIONS (2)
  - BLOOD CREATININE INCREASED [None]
  - DERMATITIS EXFOLIATIVE [None]
